FAERS Safety Report 8058121-0 (Version None)
Quarter: 2012Q1

REPORT INFORMATION
  Report Type: 
  Country: None (occurrence: None)
  Receive Date: 20120113
  Receipt Date: 20120102
  Transmission Date: 20120608
  Serious: Yes (Hospitalization)
  Sender: FDA-Public Use
  Company Number: FR-1189657

PATIENT
  Age: 75 Year
  Sex: Female

DRUGS (9)
  1. NEO-MERCAZOLE TAB [Concomitant]
  2. LAMISIL [Concomitant]
  3. IRBESARTAN [Concomitant]
  4. NARATRIPTAN [Concomitant]
  5. TOPIRAMATE [Concomitant]
  6. TRAVATAN [Suspect]
     Dosage: (OPHTHALMIC)
     Route: 047
  7. TRAVATAN [Suspect]
     Dosage: (OPHTHALMIC)
     Route: 047
  8. NOCTAMIDE [Concomitant]
  9. CELEBREX [Concomitant]

REACTIONS (2)
  - RAYNAUD'S PHENOMENON [None]
  - SJOGREN'S SYNDROME [None]
